FAERS Safety Report 8557349 (Version 3)
Quarter: 2013Q3

REPORT INFORMATION
  Report Type: Report from Study
  Country: MX (occurrence: MX)
  Receive Date: 20120511
  Receipt Date: 20130717
  Transmission Date: 20140515
  Serious: Yes (Other)
  Sender: FDA-Public Use
  Company Number: PHHY2012MX039627

PATIENT
  Age: 42 Year
  Sex: Female

DRUGS (6)
  1. FEMARA [Suspect]
     Indication: NEOPLASM MALIGNANT
     Dosage: 1 DF, DAILY
     Route: 048
     Dates: start: 20120308, end: 20120502
  2. FEMARA [Suspect]
     Indication: OVULATION INDUCTION
  3. FEMARA [Suspect]
     Indication: OFF LABEL USE
  4. ASPIRIN [Concomitant]
     Indication: NATURAL KILLER CELL COUNT INCREASED
     Dosage: 1 DF, DAILY
     Dates: start: 2010
  5. METICORTEN [Concomitant]
     Indication: NATURAL KILLER CELL COUNT INCREASED
     Dosage: 0.5 DF, UNK
     Dates: start: 2010
  6. PHARMATON [Concomitant]
     Dosage: 1 DF, DAILY

REACTIONS (1)
  - Ovarian cyst [Not Recovered/Not Resolved]
